FAERS Safety Report 24359212 (Version 1)
Quarter: 2024Q3

REPORT INFORMATION
  Report Type: Report from Study
  Country: KR (occurrence: KR)
  Receive Date: 20240924
  Receipt Date: 20240924
  Transmission Date: 20241017
  Serious: No
  Sender: Unknown Manufacturer
  Company Number: KR-ROCHE-3555115

PATIENT

DRUGS (4)
  1. PRALSETINIB [Suspect]
     Active Substance: PRALSETINIB
     Indication: Non-small cell lung cancer
     Dosage: 400 MILLIGRAM, QD
     Route: 048
     Dates: start: 20231011
  2. PRALSETINIB [Suspect]
     Active Substance: PRALSETINIB
     Dosage: 300 MILLIGRAM, QD
     Route: 048
     Dates: start: 20240424, end: 20240521
  3. PRALSETINIB [Suspect]
     Active Substance: PRALSETINIB
     Dosage: 200 MILLIGRAM, QD
     Route: 048
     Dates: start: 20240610
  4. PRALSETINIB [Suspect]
     Active Substance: PRALSETINIB
     Dosage: 100 MILLIGRAM, QD
     Route: 048
     Dates: start: 20240624

REACTIONS (2)
  - Aspartate aminotransferase increased [Not Recovered/Not Resolved]
  - Alanine aminotransferase increased [Not Recovered/Not Resolved]

NARRATIVE: CASE EVENT DATE: 20231101
